FAERS Safety Report 8336523-2 (Version None)
Quarter: 2012Q2

REPORT INFORMATION
  Report Type: 
  Country: None (occurrence: None)
  Receive Date: 20120501
  Receipt Date: 20120416
  Transmission Date: 20120825
  Serious: Yes (Other)
  Sender: FDA-Public Use
  Company Number: NSR_00534_2012

PATIENT
  Age: 43 Year
  Sex: Female
  Weight: 129.2752 kg

DRUGS (3)
  1. COREG [Concomitant]
  2. NATURAL VITAMIN D [Concomitant]
  3. FLUOXETINE [Suspect]
     Indication: PRODUCT USED FOR UNKNOWN INDICATION
     Dosage: (20 MG QD ORAL)
     Route: 048
     Dates: start: 20120413, end: 20120414

REACTIONS (7)
  - MUSCULAR WEAKNESS [None]
  - ABDOMINAL PAIN UPPER [None]
  - DYSPEPSIA [None]
  - HEADACHE [None]
  - MYOCARDIAL INFARCTION [None]
  - CHEST PAIN [None]
  - THROAT IRRITATION [None]
